FAERS Safety Report 9263845 (Version 1)
Quarter: 2013Q2

REPORT INFORMATION
  Report Type: Spontaneous
  Country: US (occurrence: None)
  Receive Date: 20130429
  Receipt Date: 20130429
  Transmission Date: 20140414
  Serious: Yes (Other)
  Sender: FDA-Public Use
  Company Number: None

PATIENT
  Sex: 0

DRUGS (1)
  1. BACLOFEN [Suspect]
     Dates: start: 20130325, end: 20130402

REACTIONS (6)
  - Vomiting [None]
  - Nausea [None]
  - Lethargy [None]
  - Therapeutic response unexpected with drug substitution [None]
  - Drug withdrawal syndrome [None]
  - Drug ineffective [None]
